FAERS Safety Report 4375537-4 (Version None)
Quarter: 2004Q2

REPORT INFORMATION
  Report Type: 
  Country: None (occurrence: None)
  Receive Date: 20040610
  Receipt Date: 20040526
  Transmission Date: 20050107
  Serious: Yes (Hospitalization, Other)
  Sender: FDA-Public Use
  Company Number: DE-JNJFOC-20040601609

PATIENT
  Sex: Female

DRUGS (11)
  1. REOPRO [Suspect]
     Dosage: 0.125 UG/KG/MIN FOR 12 HOURS
  2. REOPRO [Suspect]
     Indication: ACUTE MYOCARDIAL INFARCTION
  3. RETEVASE [Suspect]
     Indication: ACUTE MYOCARDIAL INFARCTION
  4. ASPIRIN [Concomitant]
  5. HEPARIN [Concomitant]
  6. DIURETICS [Concomitant]
  7. AMARYL [Concomitant]
  8. DIGIMERCK MINOR [Concomitant]
  9. SOTALEX MITE [Concomitant]
  10. ACE INHIBITOR [Concomitant]
  11. CALCIUM ANTAGONIST [Concomitant]

REACTIONS (13)
  - BODY TEMPERATURE INCREASED [None]
  - BRADYARRHYTHMIA [None]
  - DRUG INTERACTION [None]
  - FLUID RETENTION [None]
  - HAEMOGLOBIN DECREASED [None]
  - HAEMORRHAGE [None]
  - HYPOTENSION [None]
  - PLEURAL EFFUSION [None]
  - POST PROCEDURAL HAEMATOMA [None]
  - PROCEDURAL SITE REACTION [None]
  - PULMONARY CONGESTION [None]
  - TROPONIN INCREASED [None]
  - URINARY TRACT INFECTION [None]
